FAERS Safety Report 11055374 (Version 1)
Quarter: 2015Q2

REPORT INFORMATION
  Report Type: Spontaneous
  Country: US (occurrence: None)
  Receive Date: 20150421
  Receipt Date: 20150421
  Transmission Date: 20150821
  Serious: No
  Sender: FDA-Public Use
  Company Number: None

PATIENT
  Age: 65 Year
  Sex: Female
  Weight: 77.11 kg

DRUGS (10)
  1. PRAVASTATIN SODIUM. [Concomitant]
     Active Substance: PRAVASTATIN SODIUM
  2. DULOXETINE [Suspect]
     Active Substance: DULOXETINE
     Indication: DEPRESSION
     Route: 048
     Dates: start: 20150310, end: 20150330
  3. COCONUT OIL [Concomitant]
     Active Substance: COCONUT OIL
  4. ASPIRIN. [Concomitant]
     Active Substance: ASPIRIN
  5. LOSARTAN [Concomitant]
     Active Substance: LOSARTAN
  6. DULOXETINE [Suspect]
     Active Substance: DULOXETINE
     Indication: PAIN MANAGEMENT
     Route: 048
     Dates: start: 20150310, end: 20150330
  7. FAMOTIDINE. [Concomitant]
     Active Substance: FAMOTIDINE
  8. CINNAMON. [Concomitant]
     Active Substance: CINNAMON
  9. FISH OIL [Concomitant]
     Active Substance: FISH OIL
  10. VITAMIN B12 [Concomitant]
     Active Substance: CYANOCOBALAMIN

REACTIONS (6)
  - Product substitution issue [None]
  - Depression [None]
  - Nausea [None]
  - Product quality issue [None]
  - Pain [None]
  - Headache [None]

NARRATIVE: CASE EVENT DATE: 20150401
